FAERS Safety Report 7787624-9 (Version None)
Quarter: 2011Q3

REPORT INFORMATION
  Report Type: 
  Country: None (occurrence: None)
  Receive Date: 20110929
  Receipt Date: 20110922
  Transmission Date: 20111222
  Serious: Yes (Death)
  Sender: FDA-Public Use
  Company Number: US-AMGEN-US385701

PATIENT
  Age: 65 Year
  Sex: Male

DRUGS (4)
  1. NPLATE [Suspect]
     Indication: IDIOPATHIC THROMBOCYTOPENIC PURPURA
     Dosage: 87 MUG, UNK
     Dates: start: 20090901, end: 20091229
  2. CORTICOSTEROIDS [Concomitant]
     Dosage: UNK
     Dates: start: 20090825
  3. RITUXIMAB [Concomitant]
     Dosage: UNK
     Dates: start: 20090825
  4. IMMUNOGLOBULINS [Concomitant]
     Dosage: UNK
     Dates: start: 20090807

REACTIONS (1)
  - HEAD AND NECK CANCER [None]
